FAERS Safety Report 13496354 (Version 1)
Quarter: 2017Q2

REPORT INFORMATION
  Report Type: Spontaneous
  Country: US (occurrence: US)
  Receive Date: 20170428
  Receipt Date: 20170428
  Transmission Date: 20170830
  Serious: No
  Sender: FDA-Public Use
  Company Number: None

PATIENT

DRUGS (1)
  1. ONDANSETRON 4MG /2ML [Suspect]
     Active Substance: ONDANSETRON

REACTIONS (2)
  - Incorrect product storage [None]
  - Product colour issue [None]
